FAERS Safety Report 7285842-X (Version None)
Quarter: 2011Q1

REPORT INFORMATION
  Report Type: 
  Country: None (occurrence: None)
  Receive Date: 20110210
  Receipt Date: 20110206
  Transmission Date: 20110831
  Serious: Yes (Disabling)
  Sender: FDA-Public Use
  Company Number: JP-BRISTOL-MYERS SQUIBB COMPANY-15404759

PATIENT
  Age: 49 Year
  Sex: Female

DRUGS (6)
  1. ORENCIA [Suspect]
     Dosage: ADMISTD 3 TIMES. THERAPY DATES:8OCT10,22OCT10 57.0KG
     Dates: start: 20100924
  2. MEDROL [Suspect]
     Route: 048
  3. LIPITOR [Concomitant]
  4. MOBIC [Concomitant]
     Indication: RHEUMATOID ARTHRITIS
  5. SALAGEN [Concomitant]
  6. SOLU-MEDROL [Concomitant]

REACTIONS (1)
  - DIABETES MELLITUS [None]
